FAERS Safety Report 15207041 (Version 3)
Quarter: 2018Q4

REPORT INFORMATION
  Report Type: Spontaneous
  Country: US (occurrence: US)
  Receive Date: 20180727
  Receipt Date: 20181204
  Transmission Date: 20190204
  Serious: Yes (Other)
  Sender: FDA-Public Use
  Company Number: US-SHIRE-US201826514

PATIENT
  Age: 41 Year
  Sex: Female

DRUGS (4)
  1. CINRYZE [Suspect]
     Active Substance: HUMAN C1-ESTERASE INHIBITOR
     Dosage: 1500 IU, EVERY 3 DAYS
     Route: 042
     Dates: start: 2009
  2. HAEGARDA [Concomitant]
     Active Substance: HUMAN C1-ESTERASE INHIBITOR
     Indication: HEREDITARY ANGIOEDEMA
  3. FIRAZYR [Concomitant]
     Active Substance: ICATIBANT ACETATE
     Indication: PRODUCT USED FOR UNKNOWN INDICATION
  4. CINRYZE [Suspect]
     Active Substance: HUMAN C1-ESTERASE INHIBITOR
     Indication: HEREDITARY ANGIOEDEMA
     Dosage: UNK
     Route: 042
     Dates: start: 20150610

REACTIONS (15)
  - Rectocele [Unknown]
  - Stress [Unknown]
  - Product availability issue [Unknown]
  - Cystocele [Unknown]
  - Tissue irritation [Unknown]
  - Condition aggravated [Unknown]
  - Ill-defined disorder [Unknown]
  - Inappropriate schedule of product administration [Unknown]
  - Infection [Recovered/Resolved]
  - Breast mass [Recovered/Resolved]
  - Pelvic discomfort [Unknown]
  - Asthenia [Not Recovered/Not Resolved]
  - Hereditary angioedema [Unknown]
  - Device issue [Recovered/Resolved]
  - Prescribed overdose [Unknown]

NARRATIVE: CASE EVENT DATE: 20180702
